FAERS Safety Report 21329952 (Version 5)
Quarter: 2023Q1

REPORT INFORMATION
  Report Type: Spontaneous
  Country: US (occurrence: US)
  Receive Date: 20220913
  Receipt Date: 20230227
  Transmission Date: 20230418
  Serious: Yes (Other)
  Sender: FDA-Public Use
  Company Number: US-BRISTOL-MYERS SQUIBB COMPANY-2022-105279

PATIENT
  Age: 67 Year
  Sex: Male

DRUGS (2)
  1. REVLIMID [Suspect]
     Active Substance: LENALIDOMIDE
     Indication: Plasma cell myeloma
     Dosage: TAKE 1 CAPSULE BY MOUTH DAILY FOR 14 DAYS EVERY 21 DAYS
     Route: 048
     Dates: start: 20220415, end: 202211
  2. REVLIMID [Suspect]
     Active Substance: LENALIDOMIDE
     Route: 048

REACTIONS (7)
  - Neuropathy peripheral [Unknown]
  - Platelet count decreased [Unknown]
  - Fatigue [Unknown]
  - Depression [Unknown]
  - Product dose omission issue [Recovered/Resolved]
  - Off label use [Unknown]
  - Taste disorder [Unknown]
